FAERS Safety Report 14959027 (Version 1)
Quarter: 2018Q2

REPORT INFORMATION
  Report Type: Report from Study
  Country: US (occurrence: US)
  Receive Date: 20180531
  Receipt Date: 20180531
  Transmission Date: 20180711
  Serious: No
  Sender: FDA-Public Use
  Company Number: US-ALEXION PHARMACEUTICALS INC.-A201806360

PATIENT
  Sex: Male

DRUGS (2)
  1. SOLIRIS [Suspect]
     Active Substance: ECULIZUMAB
     Dosage: UNK
     Route: 065
  2. SOLIRIS [Suspect]
     Active Substance: ECULIZUMAB
     Indication: MYASTHENIA GRAVIS
     Dosage: UNK
     Route: 065

REACTIONS (9)
  - Hyperhidrosis [Unknown]
  - Dry eye [Unknown]
  - Dysphonia [Unknown]
  - Oropharyngeal pain [Not Recovered/Not Resolved]
  - Lymphadenopathy [Unknown]
  - Eye discharge [Unknown]
  - Vomiting [Unknown]
  - Hepatic enzyme increased [Unknown]
  - Abdominal pain upper [Unknown]

NARRATIVE: CASE EVENT DATE: 20180514
